FAERS Safety Report 5151220-2 (Version None)
Quarter: 2006Q4

REPORT INFORMATION
  Report Type: 
  Country: None (occurrence: None)
  Receive Date: 20061113
  Receipt Date: 20061113
  Transmission Date: 20070319
  Serious: Yes (Other)
  Sender: FDA-Public Use
  Company Number: None

PATIENT
  Age: 59 Year
  Sex: Female
  Weight: 86.1834 kg

DRUGS (9)
  1. LANTUS [Suspect]
     Dosage: 55 UNITS SC
     Route: 058
     Dates: start: 20060901
  2. NORVASC [Concomitant]
  3. LIPITOR [Concomitant]
  4. HUMALOG [Concomitant]
  5. NEXIUM [Concomitant]
  6. ATACAND [Concomitant]
  7. HYDROCHLOROTHIAZIDE [Concomitant]
  8. CYMBALTA [Concomitant]
  9. LISINOPRIL [Concomitant]

REACTIONS (1)
  - URTICARIA [None]
